FAERS Safety Report 8402725-X (Version None)
Quarter: 2012Q2

REPORT INFORMATION
  Report Type: 
  Country: None (occurrence: None)
  Receive Date: 20120601
  Receipt Date: 20120521
  Transmission Date: 20120825
  Serious: Yes (Hospitalization)
  Sender: FDA-Public Use
  Company Number: DE-ROCHE-1071003

PATIENT
  Sex: Male
  Weight: 80 kg

DRUGS (5)
  1. LEUCOVORIN CALCIUM [Suspect]
     Indication: PRODUCT USED FOR UNKNOWN INDICATION
  2. FLUOROURACIL [Concomitant]
     Indication: RECTAL CANCER METASTATIC
     Route: 042
  3. AVASTIN [Suspect]
     Indication: RECTAL CANCER METASTATIC
  4. FLUOROURACIL [Concomitant]
  5. IRINOTECAN HCL [Concomitant]

REACTIONS (1)
  - INTESTINAL STRANGULATION [None]
